FAERS Safety Report 12544164 (Version 1)
Quarter: 2016Q3

REPORT INFORMATION
  Report Type: Spontaneous
  Country: US (occurrence: US)
  Receive Date: 20160711
  Receipt Date: 20160711
  Transmission Date: 20161109
  Serious: Yes (Hospitalization, Disabling, Other)
  Sender: FDA-Public Use
  Company Number: US-ZYDUS-011543

PATIENT
  Age: 74 Year
  Sex: Male

DRUGS (2)
  1. LOSARTAN. [Suspect]
     Active Substance: LOSARTAN
     Indication: HYPERTENSION
     Route: 065
  2. LISINOPRIL. [Suspect]
     Active Substance: LISINOPRIL
     Indication: HYPERTENSION
     Route: 065

REACTIONS (8)
  - Mucosal inflammation [Unknown]
  - Pemphigus [Recovered/Resolved]
  - Pemphigus [Unknown]
  - Hyperplasia [Recovered/Resolved]
  - Skin plaque [Recovered/Resolved]
  - Oropharyngeal plaque [Unknown]
  - Mouth ulceration [Unknown]
  - Acantholysis [Unknown]
